FAERS Safety Report 14843651 (Version 1)
Quarter: 2018Q2

REPORT INFORMATION
  Report Type: Spontaneous
  Country: US (occurrence: US)
  Receive Date: 20180503
  Receipt Date: 20180503
  Transmission Date: 20180711
  Serious: Yes (Other)
  Sender: FDA-Public Use
  Company Number: US-PFIZER INC-2018177238

PATIENT
  Age: 66 Year
  Sex: Male
  Weight: 76.2 kg

DRUGS (1)
  1. PHENYTOIN SODIUM. [Suspect]
     Active Substance: PHENYTOIN SODIUM
     Indication: EPILEPSY
     Dosage: 200 MG, 2X/DAY
     Dates: start: 1989

REACTIONS (4)
  - Seizure [Unknown]
  - Bladder cancer stage IV [Unknown]
  - Multiple sclerosis [Unknown]
  - Diabetes mellitus [Unknown]
